FAERS Safety Report 10910042 (Version 1)
Quarter: 2015Q1

REPORT INFORMATION
  Report Type: Spontaneous
  Country: US (occurrence: US)
  Receive Date: 20150312
  Receipt Date: 20150312
  Transmission Date: 20150721
  Serious: No
  Sender: FDA-Public Use
  Company Number: US-SA-2014SA140935

PATIENT
  Age: 31 Year
  Sex: Male

DRUGS (1)
  1. NASACORT ALLERGY 24HR [Suspect]
     Active Substance: TRIAMCINOLONE ACETONIDE
     Indication: MULTIPLE ALLERGIES
     Dosage: PRODUCT START DATE : QUITE A WHILE?DOSAGE: 2 SPRAYS IEN?FREQUENCY:2-3 TIMES ADAY
     Route: 065

REACTIONS (1)
  - Extra dose administered [Unknown]
